FAERS Safety Report 13638555 (Version 4)
Quarter: 2017Q4

REPORT INFORMATION
  Report Type: Report from Study
  Country: DE (occurrence: DE)
  Receive Date: 20170609
  Receipt Date: 20171110
  Transmission Date: 20180320
  Serious: Yes (Death, Other)
  Sender: FDA-Public Use
  Company Number: PHHY2017DE081855

PATIENT
  Age: 85 Year
  Sex: Male
  Weight: 58 kg

DRUGS (6)
  1. EXJADE [Suspect]
     Active Substance: DEFERASIROX
     Indication: MYELODYSPLASTIC SYNDROME
     Dosage: 360 MG, QD (6 MG/KG PER DAY)
     Route: 048
     Dates: start: 20170111, end: 20170309
  2. EXJADE [Suspect]
     Active Substance: DEFERASIROX
     Dosage: 360 MG, QD (6.3 MG/KG PER DAY)
     Route: 048
     Dates: start: 20170615
  3. ASPIRIN. [Concomitant]
     Active Substance: ASPIRIN
     Indication: PRODUCT USED FOR UNKNOWN INDICATION
     Dosage: 100 MG, QD
     Route: 065
  4. NOVAMINSULFON [Concomitant]
     Active Substance: METAMIZOLE
     Indication: PRODUCT USED FOR UNKNOWN INDICATION
     Dosage: 1500 MG, (3 APPLICATIONS PER DAY)
     Dates: start: 20160908
  5. TORASEMIDE [Concomitant]
     Active Substance: TORSEMIDE
     Indication: OEDEMA PERIPHERAL
     Dosage: 5 MG, QD
     Route: 065
     Dates: start: 20170830
  6. EXJADE [Suspect]
     Active Substance: DEFERASIROX
     Indication: HAEMOSIDEROSIS
     Dosage: 360 MG, BID (12.2 MG/KG PER DAY)
     Route: 048
     Dates: start: 20170310, end: 20170531

REACTIONS (8)
  - Asthenia [Fatal]
  - Blood alkaline phosphatase increased [Unknown]
  - Aspartate aminotransferase increased [Unknown]
  - Alanine aminotransferase increased [Unknown]
  - General physical health deterioration [Fatal]
  - Hepatitis toxic [Recovering/Resolving]
  - Blood bilirubin increased [Unknown]
  - Gamma-glutamyltransferase increased [Unknown]

NARRATIVE: CASE EVENT DATE: 201703
